FAERS Safety Report 5214515-X (Version None)
Quarter: 2007Q1

REPORT INFORMATION
  Report Type: 
  Country: None (occurrence: None)
  Receive Date: 20070116
  Receipt Date: 20070109
  Transmission Date: 20070707
  Serious: Yes (Hospitalization, Other)
  Sender: FDA-Public Use
  Company Number: HQWYE886209JAN07

PATIENT
  Age: 78 Year
  Sex: Male

DRUGS (9)
  1. TRANGOREX (AMIODARONE, TABLET) [Suspect]
     Dosage: 1 G 5X PER 1 WK ORAL
     Route: 048
     Dates: start: 20050701, end: 20060821
  2. ALDACTONE [Suspect]
     Dosage: 25 MG 1X PER 1 DAY ORAL
     Route: 048
     Dates: start: 20000202, end: 20060821
  3. DIGOXIN [Suspect]
     Dosage: 125 UG 1X PER 1 DAY ORAL
     Route: 048
     Dates: start: 20050701, end: 20060821
  4. FUROSEMIDE [Concomitant]
  5. DILTIAZEM HYDROCHLORIDE [Concomitant]
  6. RAMIPRIL [Concomitant]
  7. VENTOLIN [Concomitant]
  8. ATROVENT [Concomitant]
  9. SINTROM [Concomitant]

REACTIONS (6)
  - CARDIOACTIVE DRUG LEVEL INCREASED [None]
  - DRUG INTERACTION [None]
  - HYPERKALAEMIA [None]
  - MALAISE [None]
  - RENAL FAILURE ACUTE [None]
  - VOMITING [None]
